FAERS Safety Report 8481773-8 (Version None)
Quarter: 2012Q3

REPORT INFORMATION
  Report Type: 
  Country: None (occurrence: None)
  Receive Date: 20120702
  Receipt Date: 20120621
  Transmission Date: 20120928
  Serious: Yes (Hospitalization, Other)
  Sender: FDA-Public Use
  Company Number: FR-ASTRAZENECA-2012SE42616

PATIENT
  Age: 55 Year
  Sex: Female

DRUGS (5)
  1. ASPEGIC 1000 [Concomitant]
     Dates: start: 20111001
  2. NEXIUM [Suspect]
     Route: 048
     Dates: start: 20120201, end: 20120221
  3. ATORVASTATIN [Suspect]
     Indication: DYSLIPIDAEMIA
     Route: 048
     Dates: start: 20111001, end: 20120221
  4. PLAVIX [Suspect]
     Route: 048
     Dates: start: 20120208, end: 20120221
  5. AMLODIPINE BESYLATE [Concomitant]
     Route: 048
     Dates: start: 20120201

REACTIONS (2)
  - ANGINA PECTORIS [None]
  - AGRANULOCYTOSIS [None]
